FAERS Safety Report 9192861 (Version 2)
Quarter: 2013Q2

REPORT INFORMATION
  Report Type: Spontaneous
  Country: FR (occurrence: FR)
  Receive Date: 20130327
  Receipt Date: 20130429
  Transmission Date: 20140414
  Serious: Yes (Death)
  Sender: FDA-Public Use
  Company Number: FR-SANOFI-AVENTIS-2013SA029849

PATIENT
  Age: 53 Year
  Sex: Male

DRUGS (8)
  1. JEVTANA [Suspect]
     Indication: PROSTATE CANCER
     Dosage: FORM: INFUSION
     Route: 042
     Dates: start: 20130125, end: 20130125
  2. PLAVIX [Concomitant]
     Route: 048
     Dates: start: 20130118, end: 20130129
  3. TAHOR [Concomitant]
     Route: 048
     Dates: start: 20130118, end: 20130130
  4. TRIATEC [Concomitant]
     Route: 048
     Dates: start: 20130118, end: 20130130
  5. LOVENOX [Concomitant]
     Route: 058
     Dates: start: 20130118, end: 20130130
  6. DAFALGAN [Concomitant]
     Route: 048
     Dates: start: 20130118, end: 20130130
  7. INEXIUM [Concomitant]
     Route: 042
     Dates: start: 20130127
  8. PRIMPERAN [Concomitant]
     Route: 042
     Dates: start: 20130127

REACTIONS (4)
  - Intestinal infarction [Fatal]
  - Abdominal distension [Fatal]
  - Vomiting [Fatal]
  - General physical health deterioration [Fatal]
